FAERS Safety Report 23289774 (Version 1)
Quarter: 2023Q4

REPORT INFORMATION
  Report Type: Report from Study
  Country: US (occurrence: None)
  Receive Date: 20231212
  Receipt Date: 20231212
  Transmission Date: 20240110
  Serious: Yes (Other)
  Sender: FDA-Public Use
  Company Number: 2023A275080

PATIENT
  Sex: Female

DRUGS (1)
  1. CALQUENCE [Suspect]
     Active Substance: ACALABRUTINIB
     Indication: Chronic lymphocytic leukaemia
     Route: 048
     Dates: start: 20230928

REACTIONS (5)
  - Capillary leak syndrome [Unknown]
  - Platelet count decreased [Unknown]
  - Hepatic enzyme increased [Unknown]
  - Headache [Unknown]
  - Contusion [Unknown]
